FAERS Safety Report 12554668 (Version 2)
Quarter: 2016Q3

REPORT INFORMATION
  Report Type: Report from Study
  Country: US (occurrence: US)
  Receive Date: 20160713
  Receipt Date: 20160726
  Transmission Date: 20161109
  Serious: Yes (Death, Other)
  Sender: FDA-Public Use
  Company Number: US-TAKEDA-2016MPI006291

PATIENT
  Age: 80 Year
  Sex: Female

DRUGS (3)
  1. ARA-C [Suspect]
     Active Substance: CYTARABINE
     Indication: ACUTE MYELOID LEUKAEMIA
     Dosage: 100 MG/M2, UNK
     Route: 042
     Dates: start: 20160622, end: 20160628
  2. IXAZOMIB [Suspect]
     Active Substance: IXAZOMIB
     Indication: ACUTE MYELOID LEUKAEMIA
     Dosage: 1.5 MG, UNK
     Route: 048
     Dates: start: 20160623, end: 20160703
  3. DAUNORUBICIN [Suspect]
     Active Substance: DAUNORUBICIN
     Indication: ACUTE MYELOID LEUKAEMIA
     Dosage: 60 MG/M2, UNK
     Route: 042
     Dates: start: 20160622, end: 20160624

REACTIONS (3)
  - Acute kidney injury [Fatal]
  - Gastrointestinal haemorrhage [Unknown]
  - Device related infection [Unknown]

NARRATIVE: CASE EVENT DATE: 20160706
